FAERS Safety Report 4400154-7 (Version None)
Quarter: 2004Q3

REPORT INFORMATION
  Report Type: 
  Country: None (occurrence: None)
  Receive Date: 20040716
  Receipt Date: 20040628
  Transmission Date: 20050211
  Serious: Yes (Hospitalization, Disabling, Other)
  Sender: FDA-Public Use
  Company Number: US_000235501

PATIENT
  Age: 41 Year
  Sex: Male
  Weight: 84 kg

DRUGS (12)
  1. HUMULIN N [Suspect]
     Indication: DIABETES MELLITUS
     Dosage: 65 U DAY
     Dates: start: 19970101
  2. HUMULIN L [Suspect]
     Indication: DIABETES MELLITUS
     Dates: end: 19990201
  3. LENTE ILETIN (BEEF-PORK) INSULIN ZINC [Suspect]
     Indication: DIABETES MELLITUS
     Dosage: 65 U/DAY
     Dates: start: 19750101, end: 19970101
  4. ILETIN [Suspect]
     Indication: DIABETES MELLITUS
     Dosage: 65 U/DAY
     Dates: start: 19510101, end: 19750101
  5. VERAPAMIL [Concomitant]
  6. ZESTRIL [Concomitant]
  7. PLAVIX [Concomitant]
  8. MEVACOR [Concomitant]
  9. VITAMIN B-12 [Concomitant]
  10. VITAMIN B6 [Concomitant]
  11. VITAMIN E [Concomitant]
  12. FOLIC ACID [Concomitant]

REACTIONS (17)
  - ANGIOPATHY [None]
  - BLINDNESS UNILATERAL [None]
  - BLOOD GLUCOSE FLUCTUATION [None]
  - CEREBRAL INFARCTION [None]
  - CEREBROVASCULAR ACCIDENT [None]
  - DIABETIC RETINOPATHY [None]
  - EYE HAEMORRHAGE [None]
  - FALL [None]
  - GLAUCOMA [None]
  - HYPERGLYCAEMIA [None]
  - HYPOGLYCAEMIA [None]
  - HYPOGLYCAEMIA UNAWARENESS [None]
  - LACERATION [None]
  - LENS IMPLANT [None]
  - SENSORY DISTURBANCE [None]
  - VISUAL ACUITY REDUCED [None]
  - WEIGHT DECREASED [None]
